FAERS Safety Report 7027527-0 (Version None)
Quarter: 2010Q4

REPORT INFORMATION
  Report Type: 
  Country: None (occurrence: None)
  Receive Date: 20101004
  Receipt Date: 20100921
  Transmission Date: 20110411
  Serious: Yes (Other)
  Sender: FDA-Public Use
  Company Number: PHHY2010JP36149

PATIENT
  Age: 50 Year
  Sex: Male

DRUGS (3)
  1. ZOMETA [Suspect]
     Indication: METASTASES TO SPINE
     Route: 041
  2. ZOMETA [Suspect]
     Indication: HYPERCALCAEMIA
  3. ONCLAST [Suspect]
     Indication: HYPERCALCAEMIA
     Route: 041

REACTIONS (6)
  - BONE DISORDER [None]
  - OSTEONECROSIS OF JAW [None]
  - OSTEOSCLEROSIS [None]
  - PRIMARY SEQUESTRUM [None]
  - TOOTH IMPACTED [None]
  - TOOTHACHE [None]
